FAERS Safety Report 5999006-0 (Version None)
Quarter: 2008Q4

REPORT INFORMATION
  Report Type: 
  Country: None (occurrence: None)
  Receive Date: 20081213
  Receipt Date: 20080728
  Transmission Date: 20090506
  Serious: No
  Sender: FDA-Public Use
  Company Number: US-AMGEN-KDL297839

PATIENT
  Sex: Male

DRUGS (2)
  1. ENBREL [Suspect]
     Indication: PSORIATIC ARTHROPATHY
     Route: 058
  2. ENBREL [Suspect]
     Indication: PSORIASIS

REACTIONS (12)
  - ABDOMINAL DISCOMFORT [None]
  - BLEPHAROSPASM [None]
  - COGNITIVE DISORDER [None]
  - CONSTIPATION [None]
  - DIARRHOEA [None]
  - FATIGUE [None]
  - FEELING HOT [None]
  - FLUSHING [None]
  - HEADACHE [None]
  - NAUSEA [None]
  - VISION BLURRED [None]
  - VISUAL IMPAIRMENT [None]
